FAERS Safety Report 6802677-X (Version None)
Quarter: 2010Q2

REPORT INFORMATION
  Report Type: 
  Country: None (occurrence: None)
  Receive Date: 20100628
  Receipt Date: 20100614
  Transmission Date: 20101027
  Serious: Yes (Hospitalization)
  Sender: FDA-Public Use
  Company Number: PHHY2010IT26517

PATIENT
  Sex: Female

DRUGS (5)
  1. CO-TAREG [Suspect]
     Indication: HYPERTENSION
     Dosage: 160/25 MG, 1 DF DAILY
     Route: 048
     Dates: start: 20090411, end: 20100411
  2. MODURETIC 5-50 [Interacting]
     Indication: HYPERTENSION
     Dosage: 1 DF, UNK
     Route: 048
     Dates: start: 20090411, end: 20100411
  3. ALMARYTM [Interacting]
     Indication: ATRIAL FIBRILLATION
     Dosage: 2 DF, UNK
     Route: 048
     Dates: start: 20100407, end: 20100411
  4. TRIATEC [Interacting]
     Indication: HYPERTENSION
     Dosage: 5 MG
     Route: 048
     Dates: start: 20090411, end: 20100411
  5. NORVASC [Concomitant]
     Indication: HYPERTENSION
     Dosage: 5 MG, 1DF
     Route: 048

REACTIONS (5)
  - DRUG INTERACTION [None]
  - HYPERKALAEMIA [None]
  - HYPONATRAEMIA [None]
  - MALAISE [None]
  - PRESYNCOPE [None]
